FAERS Safety Report 7340190-4 (Version None)
Quarter: 2011Q1

REPORT INFORMATION
  Report Type: 
  Country: None (occurrence: None)
  Receive Date: 20110228
  Receipt Date: 20110211
  Transmission Date: 20110831
  Serious: Yes (Hospitalization)
  Sender: FDA-Public Use
  Company Number: 2011PV000013

PATIENT
  Age: 63 Year
  Sex: Female
  Weight: 51 kg

DRUGS (5)
  1. HYDAL [Concomitant]
  2. BISOPROLOL [Concomitant]
  3. EUTHYROX [Concomitant]
  4. PANTOLOC /01263201/ [Concomitant]
  5. DEPOCYT [Suspect]
     Indication: METASTASES TO MENINGES
     Dosage: 50 MG;1X;INTH
     Route: 037
     Dates: start: 20110204, end: 20110204

REACTIONS (4)
  - NERVOUS SYSTEM DISORDER [None]
  - EATING DISORDER [None]
  - DYSPHAGIA [None]
  - NEOPLASM MALIGNANT [None]
